FAERS Safety Report 13696990 (Version 1)
Quarter: 2017Q2

REPORT INFORMATION
  Report Type: Spontaneous
  Country: US (occurrence: US)
  Receive Date: 20170627
  Receipt Date: 20170627
  Transmission Date: 20170830
  Serious: Yes (Other)
  Sender: FDA-Public Use
  Company Number: None

PATIENT
  Age: 56 Year
  Sex: Female
  Weight: 73.8 kg

DRUGS (1)
  1. CONTRAVE [Suspect]
     Active Substance: BUPROPION HYDROCHLORIDE\NALTREXONE HYDROCHLORIDE
     Indication: WEIGHT DECREASED
     Dosage: ?          OTHER STRENGTH:MG;QUANTITY:2 TABLET(S);?
     Route: 048
     Dates: start: 20170110, end: 20170429

REACTIONS (2)
  - Vitreous detachment [None]
  - Macular fibrosis [None]
